FAERS Safety Report 5021629-6 (Version None)
Quarter: 2006Q2

REPORT INFORMATION
  Report Type: 
  Country: None (occurrence: None)
  Receive Date: 20060605
  Receipt Date: 20050206
  Transmission Date: 20061013
  Serious: Yes (Other)
  Sender: FDA-Public Use
  Company Number: CHPA2005US01047

PATIENT
  Age: 8 Year
  Sex: Male
  Weight: 31.7 kg

DRUGS (1)
  1. TRIAMINIC ALLERCHEWS (NCH) (LORATADINE)  CHEWABLE TABLET [Suspect]
     Dosage: 1 DF, ORAL
     Route: 048
     Dates: start: 20050206, end: 20050206

REACTIONS (2)
  - HOT FLUSH [None]
  - PALPITATIONS [None]
